FAERS Safety Report 8520831-6 (Version None)
Quarter: 2012Q3

REPORT INFORMATION
  Report Type: 
  Country: None (occurrence: None)
  Receive Date: 20120719
  Receipt Date: 20120706
  Transmission Date: 20120928
  Serious: Yes (Hospitalization, Other)
  Sender: FDA-Public Use
  Company Number: FR-PFIZER INC-2012023994

PATIENT
  Age: 57 Year
  Sex: Female

DRUGS (6)
  1. ACUPAN [Suspect]
     Dosage: UNK
     Dates: start: 20110722, end: 20110813
  2. LEVOFLOXACIN [Suspect]
     Indication: ANTIBIOTIC THERAPY
     Dosage: UNK
     Route: 065
     Dates: start: 20110707, end: 20110810
  3. LYRICA [Suspect]
     Dosage: UNK
     Dates: start: 20110725, end: 20110817
  4. PANTOPRAZOLE [Suspect]
     Dosage: UNK
     Route: 048
     Dates: start: 20110718, end: 20110817
  5. RIFADIN [Suspect]
     Indication: ANTIBIOTIC THERAPY
     Dosage: UNK
     Dates: start: 20110707, end: 20110810
  6. CLONAZEPAM [Suspect]
     Dosage: UNK
     Dates: start: 20110720, end: 20110817

REACTIONS (1)
  - DRUG RASH WITH EOSINOPHILIA AND SYSTEMIC SYMPTOMS [None]
